FAERS Safety Report 6700320-1 (Version None)
Quarter: 2010Q2

REPORT INFORMATION
  Report Type: 
  Country: None (occurrence: None)
  Receive Date: 20100428
  Receipt Date: 20100413
  Transmission Date: 20101027
  Serious: Yes (Hospitalization)
  Sender: FDA-Public Use
  Company Number: PH-TYCO HEALTHCARE/MALLINCKRODT-T201001068

PATIENT
  Sex: Female
  Weight: 57.8 kg

DRUGS (1)
  1. EXALGO EXTENDED RELEASE [Suspect]
     Indication: DRUG USE FOR UNKNOWN INDICATION
     Dosage: 36 MG, UNK
     Route: 048
     Dates: start: 20100411, end: 20100411

REACTIONS (4)
  - AGITATION [None]
  - HEADACHE [None]
  - HYPERHIDROSIS [None]
  - RESTLESSNESS [None]
